FAERS Safety Report 6389514-5 (Version None)
Quarter: 2009Q4

REPORT INFORMATION
  Report Type: 
  Country: None (occurrence: None)
  Receive Date: 20091003
  Receipt Date: 20090925
  Transmission Date: 20100525
  Serious: Yes (Hospitalization)
  Sender: FDA-Public Use
  Company Number: 1-0909-31

PATIENT
  Age: 2 Year
  Sex: Male
  Weight: 11.3399 kg

DRUGS (8)
  1. DERMA-SMOOTHE/FS [Suspect]
     Indication: ECZEMA
     Dosage: TOPICAL, ONE TIME USE
     Route: 061
     Dates: start: 20090918
  2. CINGULAIR [Concomitant]
  3. PREDNISONE TAB [Concomitant]
  4. ATARAX [Concomitant]
  5. ALBUTEROL [Concomitant]
  6. PULMICORT [Concomitant]
  7. POLYCOSE [Concomitant]
  8. PROLOZAC [Concomitant]

REACTIONS (3)
  - ERYTHEMA [None]
  - SWELLING [None]
  - URTICARIA [None]
